FAERS Safety Report 18030498 (Version 5)
Quarter: 2021Q1

REPORT INFORMATION
  Report Type: Spontaneous
  Country: US (occurrence: US)
  Receive Date: 20200715
  Receipt Date: 20210317
  Transmission Date: 20210419
  Serious: Yes (Other)
  Sender: FDA-Public Use
  Company Number: US-TAKEDA-2020TUS030653

PATIENT
  Sex: Female

DRUGS (1)
  1. ENTYVIO [Suspect]
     Active Substance: VEDOLIZUMAB
     Indication: CROHN^S DISEASE
     Dosage: UNK UNK, Q4WEEKS
     Route: 042
     Dates: start: 201003

REACTIONS (3)
  - COVID-19 [Recovered/Resolved]
  - Crohn^s disease [Unknown]
  - Off label use [Unknown]
